FAERS Safety Report 6870266-7 (Version None)
Quarter: 2010Q3

REPORT INFORMATION
  Report Type: 
  Country: None (occurrence: None)
  Receive Date: 20100723
  Receipt Date: 20100714
  Transmission Date: 20110219
  Serious: No
  Sender: FDA-Public Use
  Company Number: US-BIOGENIDEC-2010BI016345

PATIENT
  Age: 49 Year
  Sex: Male

DRUGS (1)
  1. TYSABRI [Suspect]
     Indication: MULTIPLE SCLEROSIS
     Route: 042
     Dates: start: 20090803

REACTIONS (6)
  - COGNITIVE DISORDER [None]
  - FATIGUE [None]
  - MUSCLE SPASTICITY [None]
  - RASH [None]
  - STRESS [None]
  - URTICARIA [None]
